FAERS Safety Report 7896629 (Version 7)
Quarter: 2013Q1

REPORT INFORMATION
  Report Type: Spontaneous
  Country: US (occurrence: US)
  Receive Date: 20110413
  Receipt Date: 20130126
  Transmission Date: 20140127
  Serious: Yes (Life-Threatening, Hospitalization, Other)
  Sender: FDA-Public Use
  Company Number: US-US-EMD SERONO, INC.-7048416

PATIENT
  Age: 52 Year
  Sex: Male
  Weight: 73 kg

DRUGS (2)
  1. REBIF [Suspect]
     Indication: MULTIPLE SCLEROSIS
     Route: 058
     Dates: start: 20041221
  2. VITAMIN D [Concomitant]
     Indication: PRODUCT USED FOR UNKNOWN INDICATION

REACTIONS (11)
  - Incision site infection [Recovered/Resolved]
  - Arthritis [Recovered/Resolved]
  - Fall [Unknown]
  - Paralysis [Unknown]
  - Multiple sclerosis [Unknown]
  - Sensation of heaviness [Recovered/Resolved]
  - Overweight [Not Recovered/Not Resolved]
  - Dysphagia [Unknown]
  - Gait disturbance [Unknown]
  - Injection site pain [Not Recovered/Not Resolved]
  - Injection site erythema [Not Recovered/Not Resolved]
